FAERS Safety Report 9888050 (Version 1)
Quarter: 2014Q1

REPORT INFORMATION
  Report Type: Spontaneous
  Country: US (occurrence: US)
  Receive Date: 20140211
  Receipt Date: 20140211
  Transmission Date: 20141002
  Serious: Yes (Other)
  Sender: FDA-Public Use
  Company Number: US-SA-2014SA015861

PATIENT
  Sex: 0

DRUGS (1)
  1. UNISOM SLEEPTABS [Suspect]
     Indication: SLEEP DISORDER
     Route: 065

REACTIONS (1)
  - Hallucination [Not Recovered/Not Resolved]
